FAERS Safety Report 5761705-3 (Version None)
Quarter: 2008Q2

REPORT INFORMATION
  Report Type: 
  Country: None (occurrence: None)
  Receive Date: 20080606
  Receipt Date: 20080604
  Transmission Date: 20081010
  Serious: Yes (Death)
  Sender: FDA-Public Use
  Company Number: US-GILEAD-2008-0016698

PATIENT

DRUGS (10)
  1. LETAIRIS [Suspect]
     Indication: PULMONARY HYPERTENSION
     Route: 048
  2. PREDNISONE TAB [Concomitant]
     Route: 048
  3. LASIX [Concomitant]
     Route: 048
  4. TIKOSYN [Concomitant]
     Route: 048
  5. ACCUPRIL [Concomitant]
     Route: 048
  6. CARDIZEM CD [Concomitant]
     Route: 048
  7. CELEBREX [Concomitant]
     Route: 048
  8. ASPIRIN [Concomitant]
     Route: 048
  9. FLONASE [Concomitant]
     Route: 055
  10. XOPENEX [Concomitant]
     Dosage: 1.25/3 ML
     Route: 055

REACTIONS (1)
  - DEATH [None]
